FAERS Safety Report 14661368 (Version 6)
Quarter: 2019Q1

REPORT INFORMATION
  Report Type: Spontaneous
  Country: US (occurrence: US)
  Receive Date: 20180320
  Receipt Date: 20190305
  Transmission Date: 20190417
  Serious: Yes (Other)
  Sender: FDA-Public Use
  Company Number: US-CELGENEUS-USA-20180305133

PATIENT
  Sex: Female

DRUGS (2)
  1. OTEZLA [Suspect]
     Active Substance: APREMILAST
     Indication: PSORIASIS
     Dosage: 60 MILLIGRAM
     Route: 048
     Dates: start: 201705
  2. OTEZLA [Suspect]
     Active Substance: APREMILAST
     Dosage: 45 MG (TAKE ONE TABLET IN THE MORNING AND ONE-HALF TABLET IN THE EVENING)
     Route: 048

REACTIONS (6)
  - Peripheral swelling [Unknown]
  - Haemoglobin decreased [Unknown]
  - Spinal fracture [Not Recovered/Not Resolved]
  - Abdominal pain upper [Unknown]
  - Balance disorder [Unknown]
  - Blood iron decreased [Unknown]
